FAERS Safety Report 7560203-4 (Version None)
Quarter: 2011Q2

REPORT INFORMATION
  Report Type: 
  Country: None (occurrence: None)
  Receive Date: 20110621
  Receipt Date: 20110613
  Transmission Date: 20111010
  Serious: Yes (Hospitalization)
  Sender: FDA-Public Use
  Company Number: B0726843A

PATIENT
  Age: 7 Decade

DRUGS (1)
  1. ARIXTRA [Suspect]
     Route: 058

REACTIONS (1)
  - IRON DEFICIENCY [None]
